FAERS Safety Report 10168377 (Version 4)
Quarter: 2014Q4

REPORT INFORMATION
  Report Type: Report from Study
  Country: JP (occurrence: JP)
  Receive Date: 20140513
  Receipt Date: 20141014
  Transmission Date: 20150528
  Serious: Yes (Hospitalization)
  Sender: FDA-Public Use
  Company Number: JP-ROCHE-1393113

PATIENT
  Age: 62 Year
  Sex: Male
  Weight: 55.9 kg

DRUGS (41)
  1. TRASTUZUMAB [Suspect]
     Active Substance: TRASTUZUMAB
     Indication: HER-2 POSITIVE GASTRIC CANCER
     Dosage: LOADING DOSE
     Route: 042
     Dates: start: 20131217, end: 20131217
  2. DEXART [Concomitant]
     Active Substance: DEXAMETHASONE SODIUM PHOSPHATE
     Indication: NAUSEA
     Route: 042
     Dates: start: 20140107, end: 20140402
  3. ALOXI [Concomitant]
     Active Substance: PALONOSETRON HYDROCHLORIDE
     Indication: NAUSEA
     Route: 042
     Dates: start: 20140107, end: 20140402
  4. DERMOVATE [Concomitant]
     Active Substance: CLOBETASOL
     Indication: PALMAR-PLANTAR ERYTHRODYSAESTHESIA SYNDROME
     Route: 062
     Dates: start: 20140204
  5. SLOW K [Concomitant]
     Active Substance: POTASSIUM CHLORIDE
     Indication: ELECTROLYTE SUBSTITUTION THERAPY
     Route: 048
     Dates: start: 20140509, end: 20140515
  6. PENTAGIN [Concomitant]
     Active Substance: PENTAZOCINE HYDROCHLORIDE
     Indication: PROCEDURAL PAIN
     Route: 042
     Dates: start: 20140507, end: 20140507
  7. PERTUZUMAB [Suspect]
     Active Substance: PERTUZUMAB
     Dosage: MOST RECENT DOSE PRIOR TO EVENT ON : 02/APR/2014?MAINTENANCE DOSE
     Route: 042
  8. DERMOVATE [Concomitant]
     Active Substance: CLOBETASOL
     Indication: SKIN HYPERPIGMENTATION
  9. PENTAGIN [Concomitant]
     Active Substance: PENTAZOCINE HYDROCHLORIDE
     Indication: PROCEDURAL PAIN
     Route: 042
     Dates: start: 20140506, end: 20140506
  10. PERTUZUMAB [Suspect]
     Active Substance: PERTUZUMAB
     Indication: HER-2 POSITIVE GASTRIC CANCER
     Dosage: LOADING DOSE
     Route: 042
     Dates: start: 20131217, end: 20131217
  11. TRASTUZUMAB [Suspect]
     Active Substance: TRASTUZUMAB
     Dosage: MOST RECENT DOSE PRIOR TO EVENT ON : 02/APR/2014?MAINTENANCE DOSE
     Route: 042
  12. DRENISON (JAPAN) [Concomitant]
     Indication: SKIN HYPERPIGMENTATION
  13. PROPETO [Concomitant]
     Indication: PALMAR-PLANTAR ERYTHRODYSAESTHESIA SYNDROME
     Route: 062
     Dates: start: 20140218
  14. ROPION [Concomitant]
     Active Substance: FLURBIPROFEN AXETIL
     Indication: PROCEDURAL PAIN
     Route: 042
     Dates: start: 20140515
  15. CALCICOL [Concomitant]
     Active Substance: CALCIUM GLUCONATE
     Indication: ELECTROLYTE SUBSTITUTION THERAPY
     Route: 042
     Dates: start: 20140515, end: 20140515
  16. DIPRIVAN [Concomitant]
     Active Substance: PROPOFOL
     Indication: GENERAL ANAESTHESIA
     Route: 042
     Dates: start: 20140515, end: 20140515
  17. CALONAL [Concomitant]
     Active Substance: ACETAMINOPHEN
     Indication: TUMOUR PAIN
     Route: 048
     Dates: start: 20131211
  18. RULID [Concomitant]
     Active Substance: ROXITHROMYCIN
     Indication: PALMAR-PLANTAR ERYTHRODYSAESTHESIA SYNDROME
     Route: 048
     Dates: start: 20140401, end: 20140512
  19. ULTIVA [Concomitant]
     Active Substance: REMIFENTANIL HYDROCHLORIDE
     Indication: GENERAL ANAESTHESIA
     Route: 042
     Dates: start: 20140315, end: 20140515
  20. VEEN 3G [Concomitant]
     Route: 042
     Dates: start: 20140107, end: 20140402
  21. HIRUDOID (JAPAN) [Concomitant]
     Indication: SKIN HYPERPIGMENTATION
  22. DRENISON (JAPAN) [Concomitant]
     Indication: PALMAR-PLANTAR ERYTHRODYSAESTHESIA SYNDROME
     Route: 062
     Dates: start: 20140218
  23. SULBACILLIN (JAPAN) [Concomitant]
     Indication: INFECTION
     Route: 042
     Dates: start: 20140505, end: 20140507
  24. CEFAZOLIN SODIUM. [Concomitant]
     Active Substance: CEFAZOLIN SODIUM
     Indication: INFECTION
     Route: 042
     Dates: start: 20110515, end: 20140515
  25. FENTANYL. [Concomitant]
     Active Substance: FENTANYL
     Indication: ANAESTHESIA
     Route: 042
     Dates: start: 20140515, end: 20140515
  26. PROEMEND [Concomitant]
     Active Substance: FOSAPREPITANT
     Indication: NAUSEA
     Route: 042
     Dates: start: 20130107, end: 20140402
  27. MANNITOL. [Concomitant]
     Active Substance: MANNITOL
     Route: 042
     Dates: start: 20140107, end: 20140402
  28. ZOFRAN [Concomitant]
     Active Substance: ONDANSETRON HYDROCHLORIDE
     Indication: NAUSEA
     Route: 048
     Dates: start: 20131219, end: 20140402
  29. PURSENID [Concomitant]
     Route: 048
     Dates: start: 20140514, end: 20140514
  30. PENTAGIN [Concomitant]
     Active Substance: PENTAZOCINE HYDROCHLORIDE
     Indication: PROCEDURAL PAIN
     Route: 042
     Dates: start: 20140505, end: 20140505
  31. PENTAGIN [Concomitant]
     Active Substance: PENTAZOCINE HYDROCHLORIDE
     Indication: PROCEDURAL PAIN
     Route: 042
     Dates: start: 20140310, end: 20140510
  32. CISPLATIN. [Suspect]
     Active Substance: CISPLATIN
     Indication: HER-2 POSITIVE GASTRIC CANCER
     Dosage: MOST RECENT DOSE PRIOR TO EVENT ON : 02/APR/2014
     Route: 042
     Dates: start: 20131217
  33. HIRUDOID (JAPAN) [Concomitant]
     Indication: PALMAR-PLANTAR ERYTHRODYSAESTHESIA SYNDROME
     Route: 062
     Dates: start: 20140204
  34. MINOMYCIN [Concomitant]
     Active Substance: MINOCYCLINE HYDROCHLORIDE
     Indication: PALMAR-PLANTAR ERYTHRODYSAESTHESIA SYNDROME
     Route: 048
     Dates: start: 20140311, end: 20140512
  35. SLOW K [Concomitant]
     Active Substance: POTASSIUM CHLORIDE
     Dosage: DRUG REPORTED AS : KCL
     Route: 042
     Dates: start: 20140515, end: 20140515
  36. ESLAX [Concomitant]
     Active Substance: ROCURONIUM BROMIDE
     Indication: GENERAL ANAESTHESIA
     Route: 042
     Dates: start: 20140515, end: 20140515
  37. DROLEPTAN [Concomitant]
     Active Substance: DROPERIDOL
     Indication: GENERAL ANAESTHESIA
     Route: 042
     Dates: start: 20140515, end: 20140515
  38. CAPECITABINE. [Suspect]
     Active Substance: CAPECITABINE
     Indication: HER-2 POSITIVE GASTRIC CANCER
     Dosage: MOST RECENT DOSE PRIOR TO EVENT ON : 16/APR/2014
     Route: 048
     Dates: start: 20131217
  39. PROPETO [Concomitant]
     Indication: SKIN HYPERPIGMENTATION
  40. PENTAGIN [Concomitant]
     Active Substance: PENTAZOCINE HYDROCHLORIDE
     Indication: PROCEDURAL PAIN
     Route: 042
     Dates: start: 20140508, end: 20140509
  41. SEVOFRANE [Concomitant]
     Active Substance: SEVOFLURANE
     Indication: GENERAL ANAESTHESIA
     Route: 055
     Dates: start: 20140515, end: 20140515

REACTIONS (1)
  - Tumour haemorrhage [Recovered/Resolved]

NARRATIVE: CASE EVENT DATE: 20140429
